FAERS Safety Report 21242142 (Version 4)
Quarter: 2023Q2

REPORT INFORMATION
  Report Type: Report from Study
  Country: US (occurrence: US)
  Receive Date: 20220823
  Receipt Date: 20230406
  Transmission Date: 20230721
  Serious: Yes (Hospitalization)
  Sender: FDA-Public Use
  Company Number: US-SECURA BIO, INC.-2022-SECUR-US000060

PATIENT

DRUGS (4)
  1. DUVELISIB [Suspect]
     Active Substance: DUVELISIB
     Indication: Cutaneous T-cell lymphoma
     Dosage: 75 MG, BID
     Route: 048
     Dates: start: 20220615, end: 20220731
  2. DUVELISIB [Suspect]
     Active Substance: DUVELISIB
     Indication: Cutaneous T-cell lymphoma
  3. NIVOLUMAB [Suspect]
     Active Substance: NIVOLUMAB
     Indication: Cutaneous T-cell lymphoma
     Dosage: 480 MG
     Route: 048
     Dates: start: 20220615, end: 20220711
  4. NIVOLUMAB [Suspect]
     Active Substance: NIVOLUMAB
     Indication: Cutaneous T-cell lymphoma

REACTIONS (3)
  - Acute kidney injury [Not Recovered/Not Resolved]
  - Cytomegalovirus infection reactivation [Unknown]
  - Hypotension [Unknown]

NARRATIVE: CASE EVENT DATE: 20220801
